FAERS Safety Report 5229183-0 (Version None)
Quarter: 2007Q1

REPORT INFORMATION
  Report Type: 
  Country: None (occurrence: None)
  Receive Date: 20070205
  Receipt Date: 20070129
  Transmission Date: 20070707
  Serious: Yes (Hospitalization, Other)
  Sender: FDA-Public Use
  Company Number: US-BOEHRINGER INGELHEIM PHARMACEUTICALS, INC.-2007-BP-01600PF

PATIENT
  Sex: Male
  Weight: 104.5 kg

DRUGS (20)
  1. SPIRIVA [Suspect]
     Indication: EMPHYSEMA
     Route: 048
  2. SPIRIVA [Suspect]
     Indication: BRONCHITIS CHRONIC
  3. CHANTIX [Suspect]
     Indication: SMOKING CESSATION THERAPY
     Dates: start: 20070101
  4. ALPRAZOLAM [Suspect]
     Indication: ANXIETY
  5. ALPRAZOLAM [Suspect]
     Indication: SLEEP APNOEA SYNDROME
  6. ADVAIR DISKUS 100/50 [Suspect]
     Indication: ASTHMA
  7. PLAVIX [Concomitant]
  8. ASPIRIN [Concomitant]
  9. COREG [Concomitant]
  10. LISINOPRIL [Concomitant]
  11. METFORMIN HCL [Concomitant]
  12. NEXIUM [Concomitant]
  13. EFFEXOR [Concomitant]
  14. VYTORIN [Concomitant]
  15. PREDNISONE [Concomitant]
  16. NIACIN [Concomitant]
  17. MULTI-VITAMIN [Concomitant]
  18. METAMUCIL [Concomitant]
  19. ALBUTEROL [Concomitant]
  20. UNKNOWN VIAL [Concomitant]

REACTIONS (19)
  - ABDOMINAL PAIN [None]
  - ANXIETY [None]
  - ARTHRALGIA [None]
  - ASTHENIA [None]
  - BRONCHITIS [None]
  - CHEST PAIN [None]
  - CORONARY ARTERY OCCLUSION [None]
  - DEPRESSION [None]
  - DRUG INEFFECTIVE [None]
  - DYSPEPSIA [None]
  - DYSPNOEA [None]
  - EXERCISE TOLERANCE DECREASED [None]
  - GASTRITIS EROSIVE [None]
  - METABOLIC DISORDER [None]
  - NAUSEA [None]
  - PAIN [None]
  - PNEUMONIA [None]
  - SLEEP APNOEA SYNDROME [None]
  - STRESS [None]
